FAERS Safety Report 8814741 (Version 2)
Quarter: 2012Q4

REPORT INFORMATION
  Report Type: 
  Country: US (occurrence: US)
  Receive Date: 20120928
  Receipt Date: 20121112
  Transmission Date: 20130627
  Serious: Yes (Death)
  Sender: FDA-Public Use
  Company Number: US-PFIZER INC-2012239047

PATIENT
  Age: 70 Year
  Sex: Female

DRUGS (1)
  1. REVATIO [Suspect]
     Dosage: 20 mg, UNK

REACTIONS (1)
  - Cardiac failure [Fatal]
